FAERS Safety Report 17104761 (Version 1)
Quarter: 2019Q4

REPORT INFORMATION
  Report Type: Spontaneous
  Country: US (occurrence: US)
  Receive Date: 20191107
  Receipt Date: 20191107
  Transmission Date: 20200122
  Serious: Yes (Hospitalization)
  Sender: FDA-Public Use
  Company Number: None

PATIENT
  Age: 53 Year
  Sex: Female

DRUGS (21)
  1. ESBRIET [Suspect]
     Active Substance: PIRFENIDONE
     Indication: PRODUCT USED FOR UNKNOWN INDICATION
     Dosage: ?          OTHER DOSE:3 T;?
     Route: 048
     Dates: start: 20171208
  2. ASPIRIN. [Concomitant]
     Active Substance: ASPIRIN
  3. CEPHALEXIN. [Concomitant]
     Active Substance: CEPHALEXIN
  4. GABAPENTIN. [Concomitant]
     Active Substance: GABAPENTIN
  5. TIZANIDINE. [Concomitant]
     Active Substance: TIZANIDINE
  6. ACYCLOVIR. [Concomitant]
     Active Substance: ACYCLOVIR
  7. CLONAZEPAM. [Concomitant]
     Active Substance: CLONAZEPAM
  8. FLUTICASONE. [Concomitant]
     Active Substance: FLUTICASONE
  9. AMLODIPINE [Concomitant]
     Active Substance: AMLODIPINE BESYLATE
  10. DILT-XR [Concomitant]
     Active Substance: DILTIAZEM
  11. POT CHLORIDE [Concomitant]
     Active Substance: POTASSIUM CHLORIDE
  12. SYMBICORT [Concomitant]
     Active Substance: BUDESONIDE\FORMOTEROL FUMARATE DIHYDRATE
  13. HYDROCHLOROT [Concomitant]
     Active Substance: HYDROCHLOROTHIAZIDE
  14. HYDROCO/APAP [Concomitant]
     Active Substance: ACETAMINOPHEN\HYDROCODONE
  15. VITAMIN D [Concomitant]
     Active Substance: VITAMIN D NOS
  16. METOPROLOL TARTRATE. [Concomitant]
     Active Substance: METOPROLOL TARTRATE
  17. MONTELUKAST [Concomitant]
     Active Substance: MONTELUKAST SODIUM
  18. ZOLPIDEM [Concomitant]
     Active Substance: ZOLPIDEM TARTRATE
  19. KLOR-CON [Concomitant]
     Active Substance: POTASSIUM CHLORIDE
  20. PREDNISONE. [Concomitant]
     Active Substance: PREDNISONE
  21. SIMVASTATIN. [Concomitant]
     Active Substance: SIMVASTATIN

REACTIONS (2)
  - Nerve compression [None]
  - Therapy cessation [None]

NARRATIVE: CASE EVENT DATE: 20191104
